FAERS Safety Report 6741484-3 (Version None)
Quarter: 2010Q2

REPORT INFORMATION
  Report Type: 
  Country: None (occurrence: None)
  Receive Date: 20100526
  Receipt Date: 20100519
  Transmission Date: 20101027
  Serious: Yes (Life-Threatening, Other)
  Sender: FDA-Public Use
  Company Number: PHHY2010US33123

PATIENT
  Sex: Female

DRUGS (2)
  1. FOCALIN XR [Suspect]
  2. VITAMINS [Concomitant]

REACTIONS (11)
  - ANXIETY [None]
  - CRYING [None]
  - DEPRESSION [None]
  - DRUG EFFECT DECREASED [None]
  - FEELING ABNORMAL [None]
  - IRRITABILITY [None]
  - PARANOIA [None]
  - PYREXIA [None]
  - SCREAMING [None]
  - SOMNOLENCE [None]
  - VOMITING [None]
